FAERS Safety Report 4789706-2 (Version None)
Quarter: 2005Q4

REPORT INFORMATION
  Report Type: 
  Country: None (occurrence: None)
  Receive Date: 20051005
  Receipt Date: 20051005
  Transmission Date: 20060501
  Serious: Yes (Life-Threatening, Hospitalization)
  Sender: FDA-Public Use
  Company Number: None

PATIENT
  Sex: Male

DRUGS (17)
  1. ARGATROBAN [Suspect]
     Indication: HEPARIN-INDUCED THROMBOCYTOPENIA
     Dosage: 225 MG IV X 1 HR
     Route: 042
     Dates: start: 20040816
  2. DOCUSATE [Concomitant]
  3. FLUCONAZOLE [Concomitant]
  4. HYDROCORTISONE [Concomitant]
  5. LANSOPRAZOLE [Concomitant]
  6. LEVOFLOXACIN [Concomitant]
  7. MAGNESIUM SULFATE [Concomitant]
  8. METRONIDAZOLE [Concomitant]
  9. MONTELUKAST [Concomitant]
  10. MORPHINE [Concomitant]
  11. THIAMINE [Concomitant]
  12. VANCOMYCIN [Concomitant]
  13. AMIODARONE [Concomitant]
  14. FUROSEMIDE [Concomitant]
  15. NOR [Concomitant]
  16. VASOPRESSIN [Concomitant]
  17. INSULIN [Concomitant]

REACTIONS (5)
  - ACTIVATED PARTIAL THROMBOPLASTIN TIME PROLONGED [None]
  - DEVICE FAILURE [None]
  - HAEMATOCHEZIA [None]
  - INCORRECT DOSE ADMINISTERED [None]
  - RECTAL HAEMORRHAGE [None]
